FAERS Safety Report 6963343-3 (Version None)
Quarter: 2010Q3

REPORT INFORMATION
  Report Type: 
  Country: None (occurrence: None)
  Receive Date: 20100902
  Receipt Date: 20100826
  Transmission Date: 20110219
  Serious: Yes (Hospitalization)
  Sender: FDA-Public Use
  Company Number: JP-MILLENNIUM PHARMACEUTICALS, INC.-2010-02935

PATIENT

DRUGS (14)
  1. VELCADE [Suspect]
     Indication: MULTIPLE MYELOMA
     Dosage: 1.9 MG, UNK
     Route: 042
     Dates: start: 20100430, end: 20100521
  2. DECADRON [Concomitant]
     Indication: MULTIPLE MYELOMA
     Dosage: 20 MG, UNK
     Route: 042
     Dates: start: 20100430, end: 20100521
  3. SPIROPENT [Concomitant]
     Indication: PROPHYLAXIS
     Dosage: 2 UG, UNK
     Route: 048
  4. ZYLORIC                            /00003301/ [Concomitant]
     Indication: HYPERURICAEMIA
     Dosage: 2 DF, UNK
     Route: 048
  5. ZESULAN [Concomitant]
     Indication: PROPHYLAXIS
     Dosage: 6 MG, UNK
     Route: 048
  6. MYONAL                             /00287502/ [Concomitant]
     Indication: PROPHYLAXIS
     Dosage: 150 MG, UNK
     Route: 048
  7. VITAMEDIN                          /00274301/ [Concomitant]
     Indication: PROPHYLAXIS
     Dosage: 6 DF, UNK
     Route: 048
  8. PARIET [Concomitant]
     Indication: PROPHYLAXIS
     Dosage: 1 DF, UNK
     Route: 048
  9. COTRIM [Concomitant]
     Indication: PROPHYLAXIS
     Dosage: 1 DF, UNK
     Route: 048
  10. LASIX [Concomitant]
     Indication: OEDEMA
     Dosage: 1 DF, UNK
     Route: 048
  11. PURSENNID                          /00142207/ [Concomitant]
     Indication: CONSTIPATION
     Dosage: 24 MG, UNK
     Route: 048
  12. ROHYPNOL [Concomitant]
     Indication: INSOMNIA
     Dosage: 1 DF, UNK
     Route: 048
  13. CALONAL [Concomitant]
     Indication: PAIN
     Dosage: 500 MG, UNK
     Route: 048
  14. HYPEN [Concomitant]
     Indication: PAIN
     Dosage: 1 DF, UNK
     Route: 048

REACTIONS (3)
  - ASTHMA [None]
  - PANCYTOPENIA [None]
  - WHEEZING [None]
